FAERS Safety Report 9702827 (Version 1)
Quarter: 2013Q4

REPORT INFORMATION
  Report Type: Report from Study
  Country: UA (occurrence: UA)
  Receive Date: 20131121
  Receipt Date: 20131121
  Transmission Date: 20140711
  Serious: Yes (Death)
  Sender: FDA-Public Use
  Company Number: UA-GLAXOSMITHKLINE-B0946623A

PATIENT
  Age: 53 Year
  Sex: Male
  Weight: 81 kg

DRUGS (3)
  1. ADVAIR [Suspect]
     Indication: RESPIRATORY DISORDER
     Route: 055
     Dates: start: 20130708, end: 20131023
  2. VENTOLIN [Suspect]
     Indication: RESPIRATORY DISORDER
     Dosage: 100MCG AS REQUIRED
     Route: 055
     Dates: start: 20130704, end: 20131023
  3. BLINDED TRIAL MEDICATION [Suspect]
     Indication: CHRONIC OBSTRUCTIVE PULMONARY DISEASE
     Route: 048
     Dates: start: 20130722, end: 20131023

REACTIONS (2)
  - Cardiopulmonary failure [Fatal]
  - Bronchitis chronic [Fatal]
